FAERS Safety Report 5907997-9 (Version None)
Quarter: 2008Q4

REPORT INFORMATION
  Report Type: 
  Country: None (occurrence: None)
  Receive Date: 20081003
  Receipt Date: 20080929
  Transmission Date: 20090506
  Serious: No
  Sender: FDA-Public Use
  Company Number: US-B.I. PHARMACEUTICALS,INC./RIDGEFIELD-2008-BP-15116BP

PATIENT
  Sex: Male

DRUGS (8)
  1. FLOMAX [Suspect]
     Indication: BENIGN PROSTATIC HYPERPLASIA
     Dosage: .4MG
     Route: 048
     Dates: start: 20080301
  2. AVODART [Concomitant]
  3. ATENOLOL [Concomitant]
     Dosage: 25MG
  4. LIPITOR [Concomitant]
     Indication: BLOOD CHOLESTEROL INCREASED
  5. PREVACID [Concomitant]
     Indication: HIATUS HERNIA
  6. BUSPAR [Concomitant]
  7. ASPIRIN [Concomitant]
     Dosage: 81MG
  8. LYRICA [Concomitant]
     Indication: NEUROPATHY PERIPHERAL
     Dosage: 500MG

REACTIONS (1)
  - INTRAOCULAR PRESSURE INCREASED [None]
